FAERS Safety Report 10349418 (Version 1)
Quarter: 2014Q3

REPORT INFORMATION
  Report Type: Spontaneous
  Country: US (occurrence: None)
  Receive Date: 20140728
  Receipt Date: 20140728
  Transmission Date: 20150326
  Serious: Yes (Death, Hospitalization)
  Sender: FDA-Public Use
  Company Number: None

PATIENT
  Age: 65 Year
  Sex: Female
  Weight: 92.8 kg

DRUGS (3)
  1. PRAVASTATIN SODIUM. [Suspect]
     Active Substance: PRAVASTATIN SODIUM
  2. CYTARABINE. [Suspect]
     Active Substance: CYTARABINE
  3. IDARUBICIN [Suspect]
     Active Substance: IDARUBICIN

REACTIONS (2)
  - Hypotension [None]
  - Supraventricular tachycardia [None]

NARRATIVE: CASE EVENT DATE: 20140607
